FAERS Safety Report 10203971 (Version 1)
Quarter: 2014Q2

REPORT INFORMATION
  Report Type: Spontaneous
  Country: TW (occurrence: TW)
  Receive Date: 20140529
  Receipt Date: 20140529
  Transmission Date: 20141212
  Serious: Yes (Hospitalization)
  Sender: FDA-Public Use
  Company Number: TW-SA-2014SA063553

PATIENT
  Age: 42 Year
  Sex: Male

DRUGS (2)
  1. PLAVIX [Suspect]
     Indication: PRODUCT USED FOR UNKNOWN INDICATION
     Route: 048
     Dates: start: 20140321
  2. HYDROCHLOROTHIAZIDE/IRBESARTAN [Concomitant]
     Dosage: DOSAGE: 150/12.5MG/QD
     Route: 048

REACTIONS (1)
  - Percutaneous coronary intervention [Unknown]
